FAERS Safety Report 7344511-8 (Version None)
Quarter: 2011Q1

REPORT INFORMATION
  Report Type: 
  Country: None (occurrence: None)
  Receive Date: 20110308
  Receipt Date: 20110308
  Transmission Date: 20110831
  Serious: No
  Sender: FDA-Public Use
  Company Number: None

PATIENT
  Sex: Female
  Weight: 77.1115 kg

DRUGS (1)
  1. WELLBUTRIN XL [Suspect]
     Indication: DEPRESSION
     Dosage: WELLBUTRIN XL 150MG Q AM PO
     Route: 048
     Dates: start: 20110301, end: 20110302

REACTIONS (3)
  - NAUSEA [None]
  - ABDOMINAL PAIN [None]
  - VOMITING [None]
